FAERS Safety Report 8159638-0 (Version None)
Quarter: 2012Q1

REPORT INFORMATION
  Report Type: 
  Country: None (occurrence: None)
  Receive Date: 20120223
  Receipt Date: 20120221
  Transmission Date: 20120608
  Serious: Yes (Death)
  Sender: FDA-Public Use
  Company Number: GT-ROCHE-1042321

PATIENT
  Sex: Female

DRUGS (2)
  1. CAPECITABINE [Concomitant]
     Indication: BREAST CANCER
     Route: 048
     Dates: start: 20110519, end: 20110916
  2. HERCEPTIN [Suspect]
     Indication: BREAST CANCER
     Route: 042
     Dates: start: 20110916, end: 20120130

REACTIONS (1)
  - GASTROINTESTINAL HAEMORRHAGE [None]
